FAERS Safety Report 8378859-5 (Version None)
Quarter: 2012Q2

REPORT INFORMATION
  Report Type: 
  Country: None (occurrence: None)
  Receive Date: 20120523
  Receipt Date: 20120516
  Transmission Date: 20120825
  Serious: Yes (Hospitalization)
  Sender: FDA-Public Use
  Company Number: FR-AMGEN-FRASP2012021300

PATIENT
  Age: 85 Year
  Sex: Male
  Weight: 77 kg

DRUGS (10)
  1. ARANESP [Suspect]
     Indication: ANAEMIA
     Dosage: UNK
     Route: 058
     Dates: start: 20111101
  2. FORLAX                             /00754501/ [Concomitant]
  3. TENOLOL [Concomitant]
     Dosage: 1 DF, QD
     Route: 048
  4. POTASSIUM CHLORIDE [Concomitant]
     Dosage: 1 DF, QD
     Route: 048
  5. MORPHINE [Concomitant]
  6. RAMIPRIL [Concomitant]
     Dosage: 1 DF, QD
     Route: 048
  7. LASIX [Concomitant]
     Dosage: 2 DF, QD
     Route: 048
     Dates: start: 20111101
  8. ARANESP [Suspect]
     Dosage: 30 MUG, QWK
     Route: 058
     Dates: start: 20120404
  9. CALCIPARINE [Concomitant]
     Dosage: 0.7X2
     Route: 058
  10. ARIXTRA [Concomitant]

REACTIONS (2)
  - LIP OEDEMA [None]
  - HAEMOGLOBIN DECREASED [None]
